FAERS Safety Report 11666900 (Version 2)
Quarter: 2015Q4

REPORT INFORMATION
  Report Type: Report from Study
  Country: US (occurrence: US)
  Receive Date: 20151027
  Receipt Date: 20151029
  Transmission Date: 20160304
  Serious: No
  Sender: FDA-Public Use
  Company Number: PHEH2015US006225

PATIENT
  Sex: Male

DRUGS (2)
  1. EXJADE [Suspect]
     Active Substance: DEFERASIROX
     Indication: LYMPHATIC SYSTEM NEOPLASM
  2. EXJADE [Suspect]
     Active Substance: DEFERASIROX
     Indication: HAEMATOPOIETIC NEOPLASM
     Dosage: 120 OT, UNK
     Route: 065

REACTIONS (2)
  - Off label use [Unknown]
  - Diarrhoea [Unknown]
